FAERS Safety Report 16844220 (Version 2)
Quarter: 2019Q4

REPORT INFORMATION
  Report Type: Spontaneous
  Country: US (occurrence: US)
  Receive Date: 20190924
  Receipt Date: 20191009
  Transmission Date: 20200122
  Serious: Yes (Other)
  Sender: FDA-Public Use
  Company Number: US-PFIZER INC-2019410663

PATIENT
  Age: 80 Year
  Sex: Male

DRUGS (2)
  1. ADVIL [Suspect]
     Active Substance: IBUPROFEN
     Indication: DIABETIC NEUROPATHY
     Dosage: UNK
     Route: 048
  2. ADVIL [Suspect]
     Active Substance: IBUPROFEN
     Indication: LUMBAR SPINAL STENOSIS

REACTIONS (4)
  - Drug hypersensitivity [Unknown]
  - Rectal haemorrhage [Unknown]
  - Product use issue [Unknown]
  - Gastrointestinal haemorrhage [Unknown]
